FAERS Safety Report 11908046 (Version 2)
Quarter: 2016Q1

REPORT INFORMATION
  Report Type: Report from Study
  Country: CA (occurrence: CA)
  Receive Date: 20160111
  Receipt Date: 20160112
  Transmission Date: 20160526
  Serious: Yes (Other)
  Sender: FDA-Public Use
  Company Number: CA-JNJFOC-20160104720

PATIENT
  Age: 41 Year
  Sex: Male
  Weight: 85 kg

DRUGS (1)
  1. REMICADE [Suspect]
     Active Substance: INFLIXIMAB
     Indication: COLITIS ULCERATIVE
     Route: 042
     Dates: start: 201110

REACTIONS (4)
  - Vertigo [Unknown]
  - Dehydration [Unknown]
  - Dizziness [Unknown]
  - Haematochezia [Unknown]

NARRATIVE: CASE EVENT DATE: 20151224
